FAERS Safety Report 17103560 (Version 1)
Quarter: 2019Q4

REPORT INFORMATION
  Report Type: Report from Study
  Country: IE (occurrence: IE)
  Receive Date: 20191203
  Receipt Date: 20191203
  Transmission Date: 20200122
  Serious: Yes (Hospitalization)
  Sender: FDA-Public Use
  Company Number: IE-ROCHE-2390106

PATIENT
  Sex: Male
  Weight: 102.6 kg

DRUGS (14)
  1. VENLAFAXINE [Concomitant]
     Active Substance: VENLAFAXINE HYDROCHLORIDE
     Route: 048
     Dates: start: 2002
  2. BROMAZEPAM [Concomitant]
     Active Substance: BROMAZEPAM
     Route: 048
     Dates: start: 2010
  3. EPILIM [Concomitant]
     Active Substance: VALPROATE SODIUM
     Route: 048
     Dates: start: 2002
  4. NASONEX [Concomitant]
     Active Substance: MOMETASONE FUROATE
     Dosage: 2 PUFF
     Route: 065
     Dates: start: 201908
  5. LITHIUM. [Concomitant]
     Active Substance: LITHIUM
     Route: 048
     Dates: start: 2002
  6. BETNOVATE [Concomitant]
     Active Substance: BETAMETHASONE
     Route: 050
     Dates: start: 20190801
  7. ALLOPURINOL. [Concomitant]
     Active Substance: ALLOPURINOL
     Route: 048
     Dates: start: 20190806
  8. CLOMIPRAMINE [Concomitant]
     Active Substance: CLOMIPRAMINE
     Route: 048
     Dates: start: 2002
  9. IBRUTINIB [Suspect]
     Active Substance: IBRUTINIB
     Indication: CHRONIC LYMPHOCYTIC LEUKAEMIA
     Dosage: ON 18/AUG/2019, HE RECEIVED RECENT DOSE OF IBRUTINIB.
     Route: 048
     Dates: start: 20190219
  10. VALTREX [Concomitant]
     Active Substance: VALACYCLOVIR HYDROCHLORIDE
     Route: 048
     Dates: start: 20190218
  11. VENETOCLAX. [Suspect]
     Active Substance: VENETOCLAX
     Indication: CHRONIC LYMPHOCYTIC LEUKAEMIA
     Dosage: ON 18/AUG/2019, HE RECEIVED RECENT DOSE OF VENETOCLAX.
     Route: 048
     Dates: start: 20190312, end: 20190818
  12. ASTHALIN [SALBUTAMOL] [Concomitant]
     Route: 048
     Dates: start: 20190218
  13. OBINUTUZUMAB. [Suspect]
     Active Substance: OBINUTUZUMAB
     Indication: CHRONIC LYMPHOCYTIC LEUKAEMIA
     Dosage: ON 16/MAY/2019, HE RECEIVED THE RECENT DOSE OF OBINUTUZUMAB.
     Route: 042
     Dates: start: 20190219
  14. AMISULPRIDE [Concomitant]
     Active Substance: AMISULPRIDE
     Route: 048
     Dates: start: 2002

REACTIONS (1)
  - Pulmonary sepsis [Recovered/Resolved]

NARRATIVE: CASE EVENT DATE: 20190819
